FAERS Safety Report 16127132 (Version 1)
Quarter: 2019Q1

REPORT INFORMATION
  Report Type: Spontaneous
  Country: US (occurrence: US)
  Receive Date: 20190328
  Receipt Date: 20190328
  Transmission Date: 20190418
  Serious: No
  Sender: FDA-Public Use
  Company Number: US-TEVA-2019-US-1021370

PATIENT
  Sex: Female
  Weight: 107.95 kg

DRUGS (2)
  1. GABAPENTIN TEVA [Suspect]
     Active Substance: GABAPENTIN
     Indication: FIBROMYALGIA
     Route: 048
     Dates: start: 2018
  2. GABAPENTIN TEVA [Suspect]
     Active Substance: GABAPENTIN
     Route: 048
     Dates: start: 2014

REACTIONS (1)
  - Peripheral swelling [Recovered/Resolved]
